FAERS Safety Report 23052883 (Version 2)
Quarter: 2023Q4

REPORT INFORMATION
  Report Type: Report from Study
  Country: CA (occurrence: CA)
  Receive Date: 20231011
  Receipt Date: 20231024
  Transmission Date: 20240110
  Serious: Yes (Hospitalization)
  Sender: FDA-Public Use
  Company Number: CA-JNJFOC-20230745965

PATIENT
  Age: 40 Year
  Sex: Male
  Weight: 80 kg

DRUGS (1)
  1. REMICADE [Suspect]
     Active Substance: INFLIXIMAB
     Indication: Colitis ulcerative
     Route: 042
     Dates: start: 20200729

REACTIONS (9)
  - Proctitis [Unknown]
  - Colitis [Unknown]
  - Hepatic lesion [Unknown]
  - Small intestinal haemorrhage [Unknown]
  - Weight decreased [Unknown]
  - Colectomy [Recovering/Resolving]
  - Procedural intestinal perforation [Recovering/Resolving]
  - Constipation [Unknown]
  - Inflammation [Not Recovered/Not Resolved]

NARRATIVE: CASE EVENT DATE: 20230101
